FAERS Safety Report 9980447 (Version 2)
Quarter: 2014Q1

REPORT INFORMATION
  Report Type: Spontaneous
  Country: PL (occurrence: PL)
  Receive Date: 20140307
  Receipt Date: 20140310
  Transmission Date: 20141002
  Serious: Yes (Other)
  Sender: FDA-Public Use
  Company Number: PL-009507513-1403POL000221

PATIENT
  Sex: Female

DRUGS (3)
  1. THERAPY UNSPECIFIED [Suspect]
  2. RIBAVIRIN [Suspect]
     Indication: HEPATITIS C
     Dosage: UNK, BID
     Route: 048
     Dates: start: 200710
  3. INTERFERON (UNSPECIFIED) [Suspect]
     Indication: HEPATITIS C
     Dosage: UNK, QW
     Route: 058
     Dates: start: 200710

REACTIONS (14)
  - Aphonia [Unknown]
  - Thirst [Unknown]
  - Nausea [Unknown]
  - Decreased appetite [Unknown]
  - Somnolence [Unknown]
  - Pain [Unknown]
  - Pyrexia [Unknown]
  - Influenza like illness [Unknown]
  - Skin fragility [Unknown]
  - Skin atrophy [Unknown]
  - Pruritus [Unknown]
  - Alopecia [Unknown]
  - Mental impairment [Unknown]
  - Dysphonia [Unknown]
